FAERS Safety Report 9825253 (Version 2)
Quarter: 2014Q1

REPORT INFORMATION
  Report Type: Report from Study
  Country: NL (occurrence: NL)
  Receive Date: 20140117
  Receipt Date: 20140205
  Transmission Date: 20141002
  Serious: Yes (Death)
  Sender: FDA-Public Use
  Company Number: NL-ROCHE-1334274

PATIENT
  Age: 62 Year
  Sex: Male

DRUGS (6)
  1. CAPECITABINE [Suspect]
     Indication: GASTROOESOPHAGEAL CANCER
     Dosage: LAST TREATMENT WAS ON 30/NOV/2013. CUMULATIVE DOSE 86400 MG
     Route: 048
     Dates: start: 20131104
  2. EPIRUBICIN [Suspect]
     Indication: GASTROOESOPHAGEAL CANCER
     Dosage: LAST TREATMENT WAS ON 25/NOV/2013. CUMULATIVE DOSE: 226 MG
     Route: 042
     Dates: start: 20131104
  3. CISPLATIN [Suspect]
     Indication: GASTROOESOPHAGEAL CANCER
     Dosage: LAST TREATMENT WAS ON 25/NOV/2013. CUMULATIVE DOSE: 216 MG
     Route: 042
     Dates: start: 20131104
  4. PARACETAMOL [Concomitant]
     Route: 065
     Dates: start: 20131127, end: 20140113
  5. EMEND [Concomitant]
     Route: 065
     Dates: start: 20131104, end: 20131125
  6. EMEND [Concomitant]
     Route: 065
     Dates: start: 20131108, end: 20131125

REACTIONS (3)
  - Sepsis [Fatal]
  - Multi-organ failure [Fatal]
  - Anastomotic leak [Fatal]
